FAERS Safety Report 9276163 (Version 1)
Quarter: 2013Q2

REPORT INFORMATION
  Report Type: Spontaneous
  Country: US (occurrence: None)
  Receive Date: 20130502
  Receipt Date: 20130502
  Transmission Date: 20140414
  Serious: Yes (Other)
  Sender: FDA-Public Use
  Company Number: None

PATIENT
  Age: 16 Year
  Sex: Male

DRUGS (1)
  1. EXJADE [Suspect]
     Route: 048
     Dates: start: 20130304

REACTIONS (2)
  - Dizziness [None]
  - Gait disturbance [None]
